FAERS Safety Report 5707934-6 (Version None)
Quarter: 2008Q2

REPORT INFORMATION
  Report Type: 
  Country: None (occurrence: None)
  Receive Date: 20080417
  Receipt Date: 20080411
  Transmission Date: 20081010
  Serious: Yes (Hospitalization)
  Sender: FDA-Public Use
  Company Number: PHNU2008DE00827

PATIENT
  Age: 43 Year
  Sex: Female

DRUGS (1)
  1. TEGRETOL [Suspect]
     Indication: EPILEPSY
     Dosage: 400 MG, BID
     Route: 065
     Dates: start: 19940101

REACTIONS (3)
  - GRAND MAL CONVULSION [None]
  - HYPERTENSION [None]
  - VERTIGO [None]
